FAERS Safety Report 25690569 (Version 2)
Quarter: 2025Q3

REPORT INFORMATION
  Report Type: Report from Study
  Country: EU (occurrence: EU)
  Receive Date: 20250818
  Receipt Date: 20250930
  Transmission Date: 20251021
  Serious: Yes (Hospitalization)
  Sender: IPSEN BIOPHARMACEUTICALS, INC.
  Company Number: EU-SERVIER-S25011636

PATIENT
  Age: 67 Year
  Sex: Male

DRUGS (9)
  1. ONIVYDE [Suspect]
     Active Substance: IRINOTECAN HYDROCHLORIDE
     Indication: Metastatic gastric cancer
  2. ONIVYDE [Suspect]
     Active Substance: IRINOTECAN HYDROCHLORIDE
  3. ONIVYDE [Suspect]
     Active Substance: IRINOTECAN HYDROCHLORIDE
  4. AUGMENTIN [Concomitant]
     Active Substance: AMOXICILLIN\CLAVULANATE POTASSIUM
     Indication: Product used for unknown indication
     Dosage: 875 MG, TID
  5. Daflon [Concomitant]
     Indication: Product used for unknown indication
     Dosage: 1000 MG, QD
  6. Pantomed [Concomitant]
     Indication: Product used for unknown indication
     Dosage: 20 MG, QD
  7. ACETAMINOPHEN [Concomitant]
     Active Substance: ACETAMINOPHEN
     Indication: Product used for unknown indication
  8. TAMSULOSIN HYDROCHLORIDE [Concomitant]
     Active Substance: TAMSULOSIN HYDROCHLORIDE
     Indication: Product used for unknown indication
     Dosage: 0.4 MG, QD
  9. TRAMADOL HYDROCHLORIDE [Concomitant]
     Active Substance: TRAMADOL HYDROCHLORIDE
     Indication: Product used for unknown indication

REACTIONS (1)
  - Ileus [Recovered/Resolved]

NARRATIVE: CASE EVENT DATE: 20250804
